FAERS Safety Report 26045815 (Version 1)
Quarter: 2025Q4

REPORT INFORMATION
  Report Type: Spontaneous
  Country: US (occurrence: None)
  Receive Date: 20251113
  Receipt Date: 20251113
  Transmission Date: 20260117
  Serious: Yes (Hospitalization)
  Sender: FDA-CTU
  Company Number: None

PATIENT
  Age: 68 Year
  Sex: Male

DRUGS (1)
  1. PROLIA [Suspect]
     Active Substance: DENOSUMAB
     Indication: Senile osteoporosis
     Dosage: 60MG ONCE AS DIRECTED

REACTIONS (6)
  - Pain in extremity [None]
  - Arthralgia [None]
  - Myalgia [None]
  - Pain in extremity [None]
  - Arthralgia [None]
  - Blood creatine phosphokinase increased [None]
